FAERS Safety Report 10166324 (Version 2)
Quarter: 2014Q2

REPORT INFORMATION
  Report Type: Spontaneous
  Country: GB (occurrence: GB)
  Receive Date: 20140512
  Receipt Date: 20140513
  Transmission Date: 20141212
  Serious: Yes (Disabling)
  Sender: FDA-Public Use
  Company Number: GB-009507513-1405GBR004758

PATIENT
  Age: 52 Year
  Sex: Male
  Weight: 79.4 kg

DRUGS (8)
  1. RALTEGRAVIR POTASSIUM [Suspect]
     Indication: HIV INFECTION
     Dosage: 400 MG, 2/1 DAYS
     Route: 048
     Dates: start: 20140217, end: 20140424
  2. RALTEGRAVIR POTASSIUM [Suspect]
     Dosage: UNK
     Route: 048
     Dates: start: 2012, end: 2012
  3. ABACAVIR [Concomitant]
     Dosage: UNK
  4. AMLODIPINE [Concomitant]
     Dosage: UNK
  5. EPOETIN [Concomitant]
     Dosage: UNK
  6. LAMIVUDINE [Concomitant]
     Dosage: UNK
  7. RAMIPRIL [Concomitant]
     Dosage: UNK
  8. SODIUM BICARBONATE [Concomitant]
     Dosage: UNK

REACTIONS (1)
  - Muscle spasms [Unknown]
